FAERS Safety Report 4505788-7 (Version None)
Quarter: 2004Q4

REPORT INFORMATION
  Report Type: 
  Country: None (occurrence: None)
  Receive Date: 20041025
  Receipt Date: 20040308
  Transmission Date: 20050328
  Serious: Yes (Other)
  Sender: FDA-Public Use
  Company Number: US-JNJFOC-20031202938

PATIENT
  Age: 74 Year
  Sex: Female
  Weight: 64.4108 kg

DRUGS (30)
  1. REMICADE [Suspect]
     Indication: RHEUMATOID ARTHRITIS
     Dosage: 3 MG/KG, 1 IN 1 TOTAL, INTRAVENOUS; SEE IMAGE
     Route: 042
     Dates: start: 20001212
  2. REMICADE [Suspect]
     Indication: RHEUMATOID ARTHRITIS
     Dosage: 3 MG/KG, 1 IN 1 TOTAL, INTRAVENOUS; SEE IMAGE
     Route: 042
     Dates: start: 20001227
  3. REMICADE [Suspect]
     Indication: RHEUMATOID ARTHRITIS
     Dosage: 3 MG/KG, 1 IN 1 TOTAL, INTRAVENOUS; SEE IMAGE
     Route: 042
     Dates: start: 20010124
  4. REMICADE [Suspect]
     Indication: RHEUMATOID ARTHRITIS
     Dosage: 3 MG/KG, 1 IN 1 TOTAL, INTRAVENOUS; SEE IMAGE
     Route: 042
     Dates: start: 20010321
  5. REMICADE [Suspect]
     Indication: RHEUMATOID ARTHRITIS
     Dosage: 3 MG/KG, 1 IN 1 TOTAL, INTRAVENOUS; SEE IMAGE
     Route: 042
     Dates: start: 20010516
  6. REMICADE [Suspect]
     Indication: RHEUMATOID ARTHRITIS
     Dosage: 3 MG/KG, 1 IN 1 TOTAL, INTRAVENOUS; SEE IMAGE
     Route: 042
     Dates: start: 20010711
  7. REMICADE [Suspect]
     Indication: RHEUMATOID ARTHRITIS
     Dosage: 3 MG/KG, 1 IN 1 TOTAL, INTRAVENOUS; SEE IMAGE
     Route: 042
     Dates: start: 20010905
  8. REMICADE [Suspect]
     Indication: RHEUMATOID ARTHRITIS
     Dosage: 3 MG/KG, 1 IN 1 TOTAL, INTRAVENOUS; SEE IMAGE
     Route: 042
     Dates: start: 20011030
  9. REMICADE [Suspect]
     Indication: RHEUMATOID ARTHRITIS
     Dosage: 3 MG/KG, 1 IN 1 TOTAL, INTRAVENOUS; SEE IMAGE
     Route: 042
     Dates: start: 20011226
  10. REMICADE [Suspect]
     Indication: RHEUMATOID ARTHRITIS
     Dosage: 3 MG/KG, 1 IN 1 TOTAL, INTRAVENOUS; SEE IMAGE
     Route: 042
     Dates: start: 20020219
  11. REMICADE [Suspect]
     Indication: RHEUMATOID ARTHRITIS
     Dosage: 3 MG/KG, 1 IN 1 TOTAL, INTRAVENOUS; SEE IMAGE
     Route: 042
     Dates: start: 20020416
  12. REMICADE [Suspect]
     Indication: RHEUMATOID ARTHRITIS
     Dosage: 3 MG/KG, 1 IN 1 TOTAL, INTRAVENOUS; SEE IMAGE
     Route: 042
     Dates: start: 20020611
  13. REMICADE [Suspect]
     Indication: RHEUMATOID ARTHRITIS
     Dosage: 3 MG/KG, 1 IN 1 TOTAL, INTRAVENOUS; SEE IMAGE
     Route: 042
     Dates: start: 20020806
  14. REMICADE [Suspect]
     Indication: RHEUMATOID ARTHRITIS
     Dosage: 3 MG/KG, 1 IN 1 TOTAL, INTRAVENOUS; SEE IMAGE
     Route: 042
     Dates: start: 20021001
  15. REMICADE [Suspect]
     Indication: RHEUMATOID ARTHRITIS
     Dosage: 3 MG/KG, 1 IN 1 TOTAL, INTRAVENOUS; SEE IMAGE
     Route: 042
     Dates: start: 20021030
  16. REMICADE [Suspect]
     Indication: RHEUMATOID ARTHRITIS
     Dosage: 3 MG/KG, 1 IN 1 TOTAL, INTRAVENOUS; SEE IMAGE
     Route: 042
     Dates: start: 20021223
  17. REMICADE [Suspect]
     Indication: RHEUMATOID ARTHRITIS
     Dosage: 3 MG/KG, 1 IN 1 TOTAL, INTRAVENOUS; SEE IMAGE
     Route: 042
     Dates: start: 20030221
  18. REMICADE [Suspect]
     Indication: RHEUMATOID ARTHRITIS
     Dosage: 3 MG/KG, 1 IN 1 TOTAL, INTRAVENOUS; SEE IMAGE
     Route: 042
     Dates: start: 20030415
  19. REMICADE [Suspect]
     Indication: RHEUMATOID ARTHRITIS
     Dosage: 3 MG/KG, 1 IN 1 TOTAL, INTRAVENOUS; SEE IMAGE
     Route: 042
     Dates: start: 20030610
  20. REMICADE [Suspect]
     Indication: RHEUMATOID ARTHRITIS
     Dosage: 3 MG/KG, 1 IN 1 TOTAL, INTRAVENOUS; SEE IMAGE
     Route: 042
     Dates: start: 20030805
  21. REMICADE [Suspect]
     Indication: RHEUMATOID ARTHRITIS
     Dosage: 3 MG/KG, 1 IN 1 TOTAL, INTRAVENOUS; SEE IMAGE
     Route: 042
     Dates: start: 20030930
  22. REMICADE [Suspect]
     Indication: RHEUMATOID ARTHRITIS
     Dosage: 3 MG/KG, 1 IN 1 TOTAL, INTRAVENOUS; SEE IMAGE
     Route: 042
     Dates: start: 20040302
  23. METHOTREXATE SODIUM [Concomitant]
  24. FOSAMAX [Concomitant]
  25. LEVOXYL [Concomitant]
  26. HYDROCHLOROTHIAZIDE [Concomitant]
  27. FOLIC ACID [Concomitant]
  28. CALCIUM W/ VITAMIN D (CALCIUM WITH VITAMIN D) [Concomitant]
  29. PREDNISONE [Concomitant]
  30. PLAQUENIL [Concomitant]

REACTIONS (1)
  - BREAST CANCER [None]
